FAERS Safety Report 7772848-7 (Version None)
Quarter: 2011Q3

REPORT INFORMATION
  Report Type: 
  Country: None (occurrence: None)
  Receive Date: 20110922
  Receipt Date: 20100921
  Transmission Date: 20111222
  Serious: No
  Sender: FDA-Public Use
  Company Number: US-ASTRAZENECA-2010SE44418

PATIENT
  Sex: Female
  Weight: 54 kg

DRUGS (2)
  1. SEROQUEL [Suspect]
     Route: 048
     Dates: start: 20100401
  2. SEROQUEL [Suspect]
     Route: 048
     Dates: end: 20100818

REACTIONS (2)
  - TOOTH EXTRACTION [None]
  - RASH GENERALISED [None]
